FAERS Safety Report 8941814 (Version 1)
Quarter: 2012Q4

REPORT INFORMATION
  Report Type: 
  Country: US (occurrence: US)
  Receive Date: 20121203
  Receipt Date: 20121203
  Transmission Date: 20130627
  Serious: Yes (Hospitalization, Other)
  Sender: FDA-Public Use
  Company Number: US-ACTELION-A-NJ2012-74172

PATIENT
  Age: 40 Year
  Sex: Male

DRUGS (4)
  1. TRACLEER [Suspect]
     Indication: PULMONARY ARTERIAL HYPERTENSION
     Dosage: 125 mg, bid
     Route: 048
     Dates: start: 20120601
  2. TRACLEER [Suspect]
     Dosage: UNK
     Route: 048
  3. VENTAVIS [Suspect]
     Indication: PULMONARY ARTERIAL HYPERTENSION
     Dosage: UNK
     Route: 055
     Dates: start: 20120612
  4. VENTAVIS [Suspect]
     Dosage: UNK
     Route: 055

REACTIONS (4)
  - Graft complication [Recovering/Resolving]
  - Chest pain [Recovering/Resolving]
  - Fluid overload [Recovering/Resolving]
  - Dialysis [Recovering/Resolving]
